FAERS Safety Report 18249710 (Version 2)
Quarter: 2020Q4

REPORT INFORMATION
  Report Type: Report from Study
  Country: None (occurrence: AU)
  Receive Date: 20200909
  Receipt Date: 20201006
  Transmission Date: 20210113
  Serious: Yes (Hospitalization)
  Sender: FDA-Public Use
  Company Number: AU-ABBVIE-20P-008-3549064-00

PATIENT
  Age: 76 Year
  Sex: Male

DRUGS (13)
  1. AZACITIDINE. [Suspect]
     Active Substance: AZACITIDINE
     Dosage: DAY 1-5, 8 AND 9 OF EVERY 28 DAY CYCLE
     Route: 058
     Dates: start: 20200302
  2. VENETOCLAX. [Suspect]
     Active Substance: VENETOCLAX
     Indication: MYELODYSPLASTIC SYNDROME
     Dosage: DAY 1-14 OF 28 DAY CYCLE
     Route: 048
     Dates: start: 20190218, end: 20190319
  3. VENETOCLAX. [Suspect]
     Active Substance: VENETOCLAX
     Dosage: DAY 1-14 OF 28 DAY CYCLE
     Route: 048
     Dates: start: 20190827, end: 20200315
  4. POSACONAZOLE [Concomitant]
     Active Substance: POSACONAZOLE
     Indication: ANTIFUNGAL PROPHYLAXIS
     Route: 048
     Dates: start: 20200812
  5. NORMAL SALINE SOLUTION (0.9% SODIUM CHLORIDE) [Concomitant]
     Indication: PROPHYLAXIS
     Route: 042
     Dates: start: 20190218, end: 20190220
  6. VENETOCLAX. [Suspect]
     Active Substance: VENETOCLAX
     Dosage: DAY 1-14 OF 28 DAY CYCLE
     Route: 048
     Dates: start: 20200812
  7. VALACICLOVIR [Concomitant]
     Active Substance: VALACYCLOVIR HYDROCHLORIDE
     Indication: ANTIVIRAL PROPHYLAXIS
     Route: 048
     Dates: start: 20190522
  8. VENETOCLAX. [Suspect]
     Active Substance: VENETOCLAX
     Dosage: DAY 1-14 OF 28 DAY CYCLE
     Route: 048
     Dates: start: 20190320, end: 20190826
  9. AZACITIDINE. [Suspect]
     Active Substance: AZACITIDINE
     Indication: MYELODYSPLASTIC SYNDROME
     Dosage: DAY 1-5, 8 AND 9 OF EVERY 28 DAY CYCLE
     Route: 058
     Dates: start: 20190218, end: 20190723
  10. ONDANSETRON [Concomitant]
     Active Substance: ONDANSETRON
     Indication: PROPHYLAXIS OF NAUSEA AND VOMITING
     Route: 048
     Dates: start: 20190220
  11. AZACITIDINE. [Suspect]
     Active Substance: AZACITIDINE
     Dosage: DAY 1-5, 8 AND 9 OF EVERY 28 DAY CYCLE
     Route: 058
     Dates: start: 20190826, end: 20200110
  12. SLOW K [Concomitant]
     Active Substance: POTASSIUM CHLORIDE
     Indication: HYPOKALAEMIA
     Route: 048
     Dates: start: 20190524
  13. TRANSEXAMIC ACID [Concomitant]
     Active Substance: TRANEXAMIC ACID
     Indication: EPISTAXIS
     Route: 048
     Dates: start: 20190815

REACTIONS (2)
  - Febrile neutropenia [Recovered/Resolved]
  - Peripheral swelling [Recovered/Resolved]

NARRATIVE: CASE EVENT DATE: 20200831
